FAERS Safety Report 6918199-1 (Version None)
Quarter: 2010Q3

REPORT INFORMATION
  Report Type: 
  Country: None (occurrence: None)
  Receive Date: 20100806
  Receipt Date: 20100802
  Transmission Date: 20110219
  Serious: Yes (Other)
  Sender: FDA-Public Use
  Company Number: TRP_07164_2010

PATIENT
  Sex: Female

DRUGS (4)
  1. RIBASPHERE [Suspect]
     Indication: HEPATITIS C
     Dosage: (ORAL)
     Route: 048
     Dates: start: 20100407
  2. PEG-INTRON [Suspect]
     Indication: HEPATITIS C
     Dosage: (SUBCUTANEOUS)
     Route: 058
     Dates: start: 20050427
  3. LISINOPRIL [Concomitant]
  4. METFORMIN HCL [Concomitant]

REACTIONS (3)
  - HEPATIC NEOPLASM [None]
  - THYROID DISORDER [None]
  - THYROID NEOPLASM [None]
